FAERS Safety Report 13855754 (Version 2)
Quarter: 2017Q3

REPORT INFORMATION
  Report Type: Spontaneous
  Country: SE (occurrence: SE)
  Receive Date: 20170810
  Receipt Date: 20170912
  Transmission Date: 20171127
  Serious: Yes (Hospitalization)
  Sender: FDA-Public Use
  Company Number: SE-PFIZER INC-2017312706

PATIENT
  Age: 73 Year
  Sex: Female

DRUGS (7)
  1. ZOPIKLON [Concomitant]
     Active Substance: ZOPICLONE
     Indication: DEPRESSION
     Dosage: UNK
     Dates: start: 2017
  2. XANOR [Suspect]
     Active Substance: ALPRAZOLAM
     Dosage: 20 MG, UNK
  3. LEVAXIN [Concomitant]
     Active Substance: LEVOTHYROXINE SODIUM
     Indication: HYPOTHYROIDISM
     Dosage: UNK
  4. ESCITALOPRAM [Suspect]
     Active Substance: ESCITALOPRAM OXALATE
     Indication: DEPRESSION
     Dosage: UNK
     Dates: start: 201703
  5. VITAMIN B12 [Concomitant]
     Active Substance: CYANOCOBALAMIN
     Indication: PERNICIOUS ANAEMIA
     Dosage: UNK
  6. ZOLPIDEM [Concomitant]
     Active Substance: ZOLPIDEM\ZOLPIDEM TARTRATE
     Indication: DEPRESSION
     Dosage: UNK
     Dates: start: 2017
  7. XANOR [Suspect]
     Active Substance: ALPRAZOLAM
     Indication: INSOMNIA
     Dosage: 1 MG, DAILY (AT NIGHT)
     Dates: start: 2001

REACTIONS (11)
  - Gastric disorder [Recovered/Resolved]
  - Hyperglycaemia [Unknown]
  - Red blood cell sedimentation rate increased [Not Recovered/Not Resolved]
  - Toxicity to various agents [Unknown]
  - Pancreatic disorder [Not Recovered/Not Resolved]
  - Iron deficiency anaemia [Not Recovered/Not Resolved]
  - Condition aggravated [Unknown]
  - Pancreatic steatosis [Unknown]
  - Depression [Unknown]
  - Blood alkaline phosphatase increased [Not Recovered/Not Resolved]
  - Leukocytosis [Not Recovered/Not Resolved]

NARRATIVE: CASE EVENT DATE: 2017
